FAERS Safety Report 8802235 (Version 2)
Quarter: 2015Q1

REPORT INFORMATION
  Report Type: Report from Study
  Country: US (occurrence: US)
  Receive Date: 20120921
  Receipt Date: 20150313
  Transmission Date: 20150721
  Serious: Yes (Death)
  Sender: FDA-Public Use
  Company Number: US-ROCHE-1123422

PATIENT
  Sex: Male

DRUGS (10)
  1. ZOFRAN [Concomitant]
     Active Substance: ONDANSETRON HYDROCHLORIDE
     Route: 042
  2. LEUCOVORIN [Concomitant]
     Active Substance: LEUCOVORIN
     Route: 042
  3. AVASTIN [Suspect]
     Active Substance: BEVACIZUMAB
     Indication: RECTOSIGMOID CANCER
     Route: 042
     Dates: start: 20050222
  4. ANZEMET [Concomitant]
     Active Substance: DOLASETRON MESYLATE
     Route: 042
  5. ELOXATIN [Concomitant]
     Active Substance: OXALIPLATIN
  6. ALOXI [Concomitant]
     Active Substance: PALONOSETRON HYDROCHLORIDE
     Route: 042
  7. 5-FLUOROURACIL [Concomitant]
     Active Substance: FLUOROURACIL
     Route: 042
  8. BENADRYL [Concomitant]
     Active Substance: DIPHENHYDRAMINE HYDROCHLORIDE
     Route: 042
  9. AVASTIN [Suspect]
     Active Substance: BEVACIZUMAB
     Route: 065
     Dates: start: 20050222
  10. DECADRON [Concomitant]
     Active Substance: DEXAMETHASONE
     Route: 065

REACTIONS (10)
  - Vomiting [Unknown]
  - Constipation [Unknown]
  - Diarrhoea [Unknown]
  - Neuropathy peripheral [Unknown]
  - Mucosal inflammation [Unknown]
  - Decreased appetite [Unknown]
  - Death [Fatal]
  - Fatigue [Unknown]
  - Stomatitis [Unknown]
  - Nausea [Unknown]
